FAERS Safety Report 10155516 (Version 3)
Quarter: 2015Q4

REPORT INFORMATION
  Report Type: Spontaneous
  Country: US (occurrence: US)
  Receive Date: 20140506
  Receipt Date: 20151130
  Transmission Date: 20160304
  Serious: No
  Sender: FDA-Public Use
  Company Number: US-PFIZER INC-2014123254

PATIENT
  Age: 56 Year
  Sex: Female
  Weight: 67.12 kg

DRUGS (6)
  1. MOBIC [Concomitant]
     Active Substance: MELOXICAM
     Indication: ARTHRITIS
     Dosage: 7.5 MG, DAILY
  2. LYRICA [Suspect]
     Active Substance: PREGABALIN
     Indication: NERVE INJURY
     Dosage: 3X/DAY (150MG IN MORNING, 150MG IN AFTERNOON AND 300MG IN EVENING)
     Dates: start: 200712
  3. LYRICA [Suspect]
     Active Substance: PREGABALIN
     Dosage: 750 MG, 1X/DAY (150MG CAPSULES TWO IN MORNING, 1 IN AFTERNOON, TWO AT EVENING)
  4. HYDROCODONE [Concomitant]
     Active Substance: HYDROCODONE
     Dosage: TWO 10/325 MG TABLETS, 2X/DAY
  5. FLUTICASONE [Concomitant]
     Active Substance: FLUTICASONE\FLUTICASONE PROPIONATE
     Indication: DYSPNOEA
     Dosage: 100 MG, 1X/DAY (50MG PER SPRAY, ONE SPRAY IN EACH NOSTRIL)
     Route: 045
  6. PROAIR HFA [Concomitant]
     Active Substance: ALBUTEROL SULFATE
     Indication: DYSPNOEA
     Dosage: UNK

REACTIONS (9)
  - Stress [Not Recovered/Not Resolved]
  - Disease recurrence [Not Recovered/Not Resolved]
  - Hypoaesthesia [Not Recovered/Not Resolved]
  - Overdose [Not Recovered/Not Resolved]
  - Plantar fasciitis [Not Recovered/Not Resolved]
  - Paraesthesia [Not Recovered/Not Resolved]
  - Peripheral coldness [Not Recovered/Not Resolved]
  - Condition aggravated [Not Recovered/Not Resolved]
  - Pain [Not Recovered/Not Resolved]

NARRATIVE: CASE EVENT DATE: 201404
